FAERS Safety Report 6519385-5 (Version None)
Quarter: 2009Q4

REPORT INFORMATION
  Report Type: 
  Country: None (occurrence: None)
  Receive Date: 20091224
  Receipt Date: 20091224
  Transmission Date: 20100525
  Serious: No
  Sender: FDA-Public Use
  Company Number: None

PATIENT
  Age: 52 Year
  Sex: Male
  Weight: 98.8842 kg

DRUGS (2)
  1. IBUPROFEN [Suspect]
     Indication: BACK PAIN
     Dosage: 2 TWICE DAILY PO
     Route: 048
     Dates: start: 20091218, end: 20091221
  2. IBUPROFEN [Suspect]
     Indication: PAIN IN EXTREMITY
     Dosage: 2 TWICE DAILY PO
     Route: 048
     Dates: start: 20091218, end: 20091221

REACTIONS (5)
  - ABNORMAL SENSATION IN EYE [None]
  - HYPOAESTHESIA [None]
  - NERVE COMPRESSION [None]
  - PARAESTHESIA [None]
  - SENSORY DISTURBANCE [None]
